FAERS Safety Report 4704986-7 (Version None)
Quarter: 2005Q2

REPORT INFORMATION
  Report Type: 
  Country: None (occurrence: None)
  Receive Date: 20050630
  Receipt Date: 20050630
  Transmission Date: 20051028
  Serious: Yes (Death)
  Sender: FDA-Public Use
  Company Number: None

PATIENT
  Age: 56 Year
  Sex: Female
  Weight: 67.8128 kg

DRUGS (3)
  1. AVASTIN [Suspect]
     Indication: NON-SMALL CELL LUNG CANCER
     Dosage: 15 MG/KG IV BOLUS
     Route: 040
     Dates: start: 20050602, end: 20050622
  2. PEMTREXED [Suspect]
     Indication: NON-SMALL CELL LUNG CANCER
     Dosage: 500 MG /M2 IV BOLUS
     Route: 040
     Dates: start: 20050602, end: 20050622
  3. OXIPLATIN [Concomitant]

REACTIONS (1)
  - HAEMOPTYSIS [None]
